FAERS Safety Report 4768617-2 (Version None)
Quarter: 2005Q3

REPORT INFORMATION
  Report Type: 
  Country: None (occurrence: None)
  Receive Date: 20050914
  Receipt Date: 20050907
  Transmission Date: 20060218
  Serious: Yes (Death)
  Sender: FDA-Public Use
  Company Number: US-JNJFOC-20050901886

PATIENT
  Age: 52 Year
  Sex: Female

DRUGS (3)
  1. CYCLOBENZAPRINE HCL [Suspect]
     Indication: SUICIDE ATTEMPT
     Route: 048
  2. ACETAMINOPHEN/PROPOXYPHENE [Suspect]
     Route: 048
  3. ACETAMINOPHEN/PROPOXYPHENE [Suspect]
     Indication: SUICIDE ATTEMPT
     Route: 048

REACTIONS (1)
  - COMPLETED SUICIDE [None]
